FAERS Safety Report 9149750 (Version 1)
Quarter: 2013Q1

REPORT INFORMATION
  Report Type: Spontaneous
  Country: US (occurrence: US)
  Receive Date: 20130308
  Receipt Date: 20130308
  Transmission Date: 20140127
  Serious: No
  Sender: FDA-Public Use
  Company Number: US-ENDO PHARMACEUTICALS INC.-OPCR20120590

PATIENT
  Sex: Female

DRUGS (4)
  1. OPANA ER [Suspect]
     Indication: NEURALGIA
     Route: 048
     Dates: start: 20120419, end: 20120424
  2. PERCOCET [Concomitant]
     Indication: BREAKTHROUGH PAIN
     Dosage: UNKNOWN
     Route: 048
     Dates: start: 2002
  3. LORTAB [Concomitant]
     Indication: BREAKTHROUGH PAIN
     Dosage: UNKNOWN
     Route: 048
     Dates: start: 2002
  4. OPANA ER [Concomitant]
     Indication: NEURALGIA
     Dosage: UNKNOWN
     Route: 048
     Dates: end: 20120419

REACTIONS (4)
  - Feeling drunk [Unknown]
  - Euphoric mood [Unknown]
  - Nausea [Unknown]
  - Drug effect decreased [Recovered/Resolved]
